FAERS Safety Report 22236231 (Version 2)
Quarter: 2023Q2

REPORT INFORMATION
  Report Type: Spontaneous
  Country: US (occurrence: US)
  Receive Date: 20230420
  Receipt Date: 20230504
  Transmission Date: 20230722
  Serious: Yes (Hospitalization)
  Sender: FDA-Public Use
  Company Number: US-TEVA-2023-US-2877038

PATIENT
  Age: 64 Year
  Sex: Female

DRUGS (3)
  1. LACTULOSE [Suspect]
     Active Substance: LACTULOSE
     Indication: Ammonia increased
     Route: 065
  2. GLYCEROL PHENYLBUTYRATE [Suspect]
     Active Substance: GLYCEROL PHENYLBUTYRATE
     Indication: Ornithine transcarbamoylase deficiency
     Dosage: 16.5 ML DAILY; THRICE DAILY ROUTE: {VIA NASOGASTRIC}
     Route: 050
  3. GLYCEROL PHENYLBUTYRATE [Suspect]
     Active Substance: GLYCEROL PHENYLBUTYRATE
     Indication: Ammonia increased

REACTIONS (2)
  - Malabsorption [Unknown]
  - Drug ineffective [Unknown]
